FAERS Safety Report 6456177-X (Version None)
Quarter: 2009Q4

REPORT INFORMATION
  Report Type: 
  Country: None (occurrence: None)
  Receive Date: 20091125
  Receipt Date: 20091119
  Transmission Date: 20100525
  Serious: Yes (Other)
  Sender: FDA-Public Use
  Company Number: GB-B.I. PHARMACEUTICALS,INC./RIDGEFIELD-2009-UK-01036UK

PATIENT
  Age: 76 Year
  Sex: Male
  Weight: 57 kg

DRUGS (4)
  1. SPIRIVA [Suspect]
     Indication: CHRONIC OBSTRUCTIVE PULMONARY DISEASE
     Dosage: 1 DF 1/1 DAYS
     Route: 055
     Dates: start: 20061012, end: 20061024
  2. AMITRIPTYLINE [Concomitant]
     Dosage: 10 MG
     Route: 048
     Dates: start: 20050609
  3. SERETIDE [Concomitant]
     Indication: CHRONIC OBSTRUCTIVE PULMONARY DISEASE
     Dosage: 500 MCG
     Route: 055
     Dates: start: 20050809
  4. VENTOLIN [Concomitant]
     Dosage: AS NECESSARY
     Route: 055
     Dates: start: 20070101

REACTIONS (1)
  - CONDITION AGGRAVATED [None]
